FAERS Safety Report 5437387-7 (Version None)
Quarter: 2007Q3

REPORT INFORMATION
  Report Type: 
  Country: None (occurrence: None)
  Receive Date: 20070831
  Receipt Date: 20070821
  Transmission Date: 20080115
  Serious: Yes (Life-Threatening, Hospitalization, Other)
  Sender: FDA-Public Use
  Company Number: US-MERCK-0708USA01396

PATIENT
  Age: 88 Year
  Sex: Female
  Weight: 54 kg

DRUGS (10)
  1. ZETIA [Suspect]
     Route: 048
     Dates: start: 20070626
  2. ZOCOR [Suspect]
     Route: 048
     Dates: end: 20070626
  3. COZAAR [Concomitant]
     Route: 048
  4. TOPROL-XL [Concomitant]
     Route: 065
  5. ISOSORBIDE [Concomitant]
     Route: 065
  6. SYNTHROID [Concomitant]
     Route: 065
  7. ASPIRIN [Concomitant]
     Route: 065
  8. GINKGO [Concomitant]
     Route: 065
  9. CENTRUM SILVER [Concomitant]
     Route: 065
  10. PLAVIX [Concomitant]
     Route: 065

REACTIONS (9)
  - CHILLS [None]
  - DEHYDRATION [None]
  - DIARRHOEA [None]
  - DIZZINESS [None]
  - MYALGIA [None]
  - NAUSEA [None]
  - NIGHT SWEATS [None]
  - ORTHOSTATIC HYPOTENSION [None]
  - URINARY TRACT INFECTION [None]
